FAERS Safety Report 9846062 (Version 16)
Quarter: 2016Q4

REPORT INFORMATION
  Report Type: Report from Study
  Country: US (occurrence: US)
  Receive Date: 20140127
  Receipt Date: 20161117
  Transmission Date: 20170207
  Serious: Yes (Hospitalization, Disabling)
  Sender: FDA-Public Use
  Company Number: US-SANOFI-AVENTIS-2013SA057433

PATIENT
  Age: 55 Year
  Sex: Male

DRUGS (3)
  1. AUBAGIO [Suspect]
     Active Substance: TERIFLUNOMIDE
     Indication: MULTIPLE SCLEROSIS
     Dosage: START DATE: 4-5 MONTHS
     Route: 048
     Dates: end: 201607
  2. AUBAGIO [Suspect]
     Active Substance: TERIFLUNOMIDE
     Indication: MULTIPLE SCLEROSIS
     Dosage: START DATE: 4-5 MONTHS
     Route: 048
     Dates: start: 20130213
  3. AUBAGIO [Suspect]
     Active Substance: TERIFLUNOMIDE
     Indication: MULTIPLE SCLEROSIS
     Dosage: START DATE: 4-5 MONTHS
     Route: 048

REACTIONS (21)
  - Cough [Not Recovered/Not Resolved]
  - Blood cholesterol abnormal [Unknown]
  - Nausea [Recovered/Resolved]
  - Abasia [Not Recovered/Not Resolved]
  - Eye movement disorder [Recovered/Resolved]
  - Blood test abnormal [Recovered/Resolved]
  - Pneumonia [Not Recovered/Not Resolved]
  - Seizure [Unknown]
  - Dysgraphia [Unknown]
  - Abdominal discomfort [Unknown]
  - Weight increased [Unknown]
  - Influenza like illness [Not Recovered/Not Resolved]
  - Product supply issue [Unknown]
  - Fatigue [Unknown]
  - Diarrhoea [Not Recovered/Not Resolved]
  - Staring [Recovered/Resolved]
  - Influenza [Unknown]
  - Nuclear magnetic resonance imaging abnormal [Unknown]
  - Decreased appetite [Not Recovered/Not Resolved]
  - Decubitus ulcer [Not Recovered/Not Resolved]
  - Arthropathy [Not Recovered/Not Resolved]

NARRATIVE: CASE EVENT DATE: 20130604
